FAERS Safety Report 7001250-0 (Version None)
Quarter: 2010Q3

REPORT INFORMATION
  Report Type: 
  Country: None (occurrence: None)
  Receive Date: 20100920
  Receipt Date: 20070514
  Transmission Date: 20110219
  Serious: Yes (Hospitalization)
  Sender: FDA-Public Use
  Company Number: US-ASTRAZENECA-2006UW08199

PATIENT
  Age: 12124 Day
  Sex: Male
  Weight: 79.5 kg

DRUGS (16)
  1. SEROQUEL [Suspect]
     Indication: DEPRESSION
     Dosage: 100, 200, 300 MG
     Route: 048
     Dates: start: 20050101, end: 20060101
  2. SEROQUEL [Suspect]
     Route: 048
     Dates: start: 20051101
  3. SEROQUEL [Suspect]
     Dosage: 100 MG IN THE MORNING AND AT NOON AND 300 MG
     Route: 048
     Dates: start: 20051123
  4. SEROQUEL [Suspect]
     Dosage: 200 MG AM AND 300 MG IN NIGHT
     Route: 048
     Dates: start: 20061030
  5. GEODON [Concomitant]
  6. RISPERDAL [Concomitant]
  7. PERCOCET [Concomitant]
     Route: 048
     Dates: start: 19991216
  8. TRAZODONE HCL [Concomitant]
     Dosage: 50-150 MG
     Route: 048
     Dates: start: 20051230
  9. HUMULIN R [Concomitant]
     Dates: start: 20040521
  10. TOPROL-XL [Concomitant]
     Route: 048
     Dates: start: 20060714
  11. PRILOSEC [Concomitant]
     Route: 048
     Dates: start: 20060220
  12. LISINOPRIL [Concomitant]
     Dosage: 5-40 MG
     Route: 048
     Dates: start: 20040415
  13. METHOTREXATE [Concomitant]
     Dosage: 2.5 MG, 4 TABS ONCE IN WEEK
     Route: 048
     Dates: start: 20060118
  14. CHLORDIAZEPOXIDE [Concomitant]
     Route: 048
     Dates: start: 20061030
  15. ASACOL [Concomitant]
     Dosage: 400-2400 MG
     Dates: start: 20051123
  16. PREDNISONE [Concomitant]
     Dates: start: 20051130

REACTIONS (3)
  - DIABETES MELLITUS [None]
  - PANCREATITIS [None]
  - TYPE 2 DIABETES MELLITUS [None]
